FAERS Safety Report 5820955-8 (Version None)
Quarter: 2008Q3

REPORT INFORMATION
  Report Type: 
  Country: None (occurrence: None)
  Receive Date: 20080721
  Receipt Date: 20080707
  Transmission Date: 20090109
  Serious: Yes (Hospitalization, Other)
  Sender: FDA-Public Use
  Company Number: 2006BI011680

PATIENT
  Age: 48 Year
  Sex: Female
  Weight: 151.955 kg

DRUGS (13)
  1. AVONEX [Suspect]
     Indication: MULTIPLE SCLEROSIS
     Dosage: 30 UG; QW; IM; 30 UG; QW; IM; 30 UG; QW; IM
     Route: 030
     Dates: start: 20000301, end: 20031001
  2. AVONEX [Suspect]
     Indication: MULTIPLE SCLEROSIS
     Dosage: 30 UG; QW; IM; 30 UG; QW; IM; 30 UG; QW; IM
     Route: 030
     Dates: start: 20030101, end: 20080427
  3. AVONEX [Suspect]
     Indication: MULTIPLE SCLEROSIS
     Dosage: 30 UG; QW; IM; 30 UG; QW; IM; 30 UG; QW; IM
     Route: 030
     Dates: start: 20080501
  4. AMANTADINE (CON.) [Concomitant]
  5. COZAAR (CON.) [Concomitant]
  6. ANTIVERT (CON.) [Concomitant]
  7. ALAVERT (CON.) [Concomitant]
  8. LASIX (CON.) [Concomitant]
  9. CYMBALTA (CON.) [Concomitant]
  10. THYROID MED (NOS) (CON.) [Concomitant]
  11. INVESTIGATINAL CHEMOTHERAPY (CON.) [Concomitant]
  12. DIURETIC (PREV.) [Concomitant]
  13. ANGIOTENSION RECEPTOR BLACKER (PREV.) [Concomitant]

REACTIONS (10)
  - BILE DUCT CANCER [None]
  - BLOOD ALBUMIN DECREASED [None]
  - BLOOD ALKALINE PHOSPHATASE INCREASED [None]
  - DEHYDRATION [None]
  - DIZZINESS [None]
  - HEPATIC NEOPLASM MALIGNANT [None]
  - HYPOTENSION [None]
  - PYREXIA [None]
  - SEPSIS [None]
  - URINARY TRACT INFECTION [None]
